FAERS Safety Report 14936028 (Version 3)
Quarter: 2018Q2

REPORT INFORMATION
  Report Type: Spontaneous
  Country: US (occurrence: US)
  Receive Date: 20180524
  Receipt Date: 20180629
  Transmission Date: 20180711
  Serious: Yes (Hospitalization)
  Sender: FDA-Public Use
  Company Number: US-CELGENEUS-USA-20180507267

PATIENT
  Sex: Female
  Weight: 70.3 kg

DRUGS (4)
  1. VIDAZA [Suspect]
     Active Substance: AZACITIDINE
     Indication: NEOPLASM MALIGNANT
     Dosage: 75 MILLIGRAM/SQ. METER
     Route: 041
     Dates: start: 20180419
  2. INCB039110 [Suspect]
     Active Substance: INVESTIGATIONAL PRODUCT
     Indication: NEOPLASM MALIGNANT
     Dosage: 160 MILLIGRAM
     Route: 048
     Dates: start: 20180419
  3. INCB039110 [Suspect]
     Active Substance: INVESTIGATIONAL PRODUCT
     Dosage: 160 MILLIGRAM
     Route: 048
     Dates: start: 20180422, end: 20180515
  4. VIDAZA [Suspect]
     Active Substance: AZACITIDINE
     Dosage: 75 MILLIGRAM/SQ. METER
     Route: 041
     Dates: start: 20180422

REACTIONS (7)
  - Pyrexia [Not Recovered/Not Resolved]
  - Confusional state [Unknown]
  - Malaise [Unknown]
  - Aspartate aminotransferase increased [Not Recovered/Not Resolved]
  - Alanine aminotransferase increased [Not Recovered/Not Resolved]
  - Nausea [Unknown]
  - Pyrexia [Unknown]

NARRATIVE: CASE EVENT DATE: 20180523
